FAERS Safety Report 12073669 (Version 1)
Quarter: 2016Q1

REPORT INFORMATION
  Report Type: Other
  Country: IN (occurrence: IN)
  Receive Date: 20160212
  Receipt Date: 20160212
  Transmission Date: 20160526
  Serious: Yes (Other)
  Sender: FDA-Public Use
  Company Number: IN-PURDUE-GBR-2016-0033869

PATIENT
  Age: 20 Year
  Sex: Male

DRUGS (5)
  1. NON-PMN BUPRENORPHINE [Suspect]
     Active Substance: BUPRENORPHINE
     Indication: DRUG WITHDRAWAL SYNDROME
     Dosage: 4 MG, UNK
     Route: 060
  2. METHYLENEDIOXYMETHAMPHETAMINE [Concomitant]
     Active Substance: METHYLENEDIOXYMETHAMPHETAMINE
     Route: 065
  3. HEROIN [Concomitant]
     Active Substance: DIACETYLMORPHINE
     Route: 065
  4. NON-PMN BUPRENORPHINE [Suspect]
     Active Substance: BUPRENORPHINE
     Dosage: 2 MG, UNK
     Route: 060
  5. LSD [Concomitant]
     Active Substance: LYSERGIDE
     Route: 065

REACTIONS (1)
  - Substance-induced psychotic disorder [Recovered/Resolved]
